FAERS Safety Report 9605963 (Version 2)
Quarter: 2013Q4

REPORT INFORMATION
  Report Type: Spontaneous
  Country: US (occurrence: US)
  Receive Date: 20131008
  Receipt Date: 20131010
  Transmission Date: 20140711
  Serious: Yes (Other)
  Sender: FDA-Public Use
  Company Number: US-BAXTER-2013BAX038760

PATIENT
  Age: 2 Year
  Sex: Female
  Weight: 13.63 kg

DRUGS (7)
  1. GAMMAGARD LIQUID [Suspect]
     Indication: OPSOCLONUS MYOCLONUS
     Dosage: 1 GRAM/KILOGRAM
     Route: 042
     Dates: start: 20121108
  2. GAMMAGARD LIQUID [Suspect]
     Indication: OFF LABEL USE
  3. GAMMAGARD LIQUID [Suspect]
     Indication: PARANEOPLASTIC SYNDROME
  4. RITUXAN [Concomitant]
     Indication: NEUROBLASTOMA
     Route: 042
     Dates: start: 201309
  5. TYLENOL [Concomitant]
     Indication: PREMEDICATION
     Dosage: BEFORE GGL INFUSION
     Route: 065
     Dates: start: 201211
  6. BENADRYL [Concomitant]
     Indication: PREMEDICATION
     Dosage: BEFORE AND AFTER GGL INFUSION
     Route: 065
     Dates: start: 201211
  7. INFLUENZA VACCINE [Concomitant]
     Indication: IMMUNISATION
     Route: 065
     Dates: start: 2012, end: 2012

REACTIONS (1)
  - Meningitis aseptic [Recovered/Resolved]
